FAERS Safety Report 7047170-7 (Version None)
Quarter: 2010Q4

REPORT INFORMATION
  Report Type: 
  Country: None (occurrence: None)
  Receive Date: 20101015
  Receipt Date: 20101001
  Transmission Date: 20110411
  Serious: Yes (Death, Hospitalization, Other)
  Sender: FDA-Public Use
  Company Number: US-ACTELION-A-US2010-39497

PATIENT
  Sex: Male

DRUGS (3)
  1. BOSENTAN TABLET UNKNOWN US MG [Suspect]
     Indication: PULMONARY ARTERIAL HYPERTENSION
     Dosage: UNK
     Route: 048
     Dates: start: 20081210
  2. TADALAFIL [Concomitant]
  3. CALCIUM CHANNEL BLOCKERS [Concomitant]

REACTIONS (9)
  - ANAEMIA [None]
  - CARDIAC FAILURE [None]
  - FALL [None]
  - GASTROINTESTINAL HAEMORRHAGE [None]
  - HEAD INJURY [None]
  - OEDEMA [None]
  - PNEUMONIA [None]
  - RIGHT VENTRICULAR FAILURE [None]
  - SWELLING [None]
